FAERS Safety Report 6613947-2 (Version None)
Quarter: 2010Q1

REPORT INFORMATION
  Report Type: 
  Country: None (occurrence: None)
  Receive Date: 20100304
  Receipt Date: 20100225
  Transmission Date: 20100710
  Serious: Yes (Hospitalization)
  Sender: FDA-Public Use
  Company Number: B0637397A

PATIENT
  Sex: Female
  Weight: 61.5 kg

DRUGS (5)
  1. COMBIVIR [Suspect]
     Indication: PROPHYLAXIS AGAINST HIV INFECTION
     Route: 048
     Dates: start: 20100211
  2. EFAVIRENZ [Suspect]
     Indication: PROPHYLAXIS AGAINST HIV INFECTION
     Dosage: 600MG PER DAY
     Route: 048
     Dates: start: 20100211
  3. ACYCLOVIR [Concomitant]
     Indication: GENITAL ULCERATION
     Route: 048
     Dates: end: 20100213
  4. CIPROFLOXACIN [Concomitant]
     Indication: GENITAL ULCERATION
     Route: 048
     Dates: end: 20100211
  5. BENZATHINE PENICILLIN G [Concomitant]
     Indication: GENITAL ULCERATION
     Route: 048
     Dates: end: 20100211

REACTIONS (8)
  - ASTHENIA [None]
  - DECREASED APPETITE [None]
  - DIZZINESS [None]
  - HEADACHE [None]
  - MALARIA [None]
  - PAIN [None]
  - PYREXIA [None]
  - VOMITING [None]
